FAERS Safety Report 7708468-X (Version None)
Quarter: 2011Q3

REPORT INFORMATION
  Report Type: 
  Country: None (occurrence: None)
  Receive Date: 20110825
  Receipt Date: 20110716
  Transmission Date: 20111222
  Serious: Yes (Hospitalization)
  Sender: FDA-Public Use
  Company Number: IE-JNJFOC-20110807748

PATIENT
  Sex: Female

DRUGS (14)
  1. TRAMADOL HCL [Suspect]
     Indication: PRODUCT USED FOR UNKNOWN INDICATION
     Dosage: 50 MG TWICE A DAY
     Route: 048
     Dates: start: 20090806, end: 20090811
  2. TRAMADOL HCL [Suspect]
     Indication: PRODUCT USED FOR UNKNOWN INDICATION
     Dosage: 200 MG DAILY
     Route: 065
  3. CRESTOR [Concomitant]
     Route: 065
  4. ZIMOVANE [Concomitant]
     Route: 065
  5. ACETAMINOPHEN [Suspect]
     Route: 065
  6. ACETAMINOPHEN W/ CODEINE [Suspect]
     Indication: PRODUCT USED FOR UNKNOWN INDICATION
     Route: 065
     Dates: start: 20090809, end: 20090810
  7. DICLOFENAC SODIUM [Suspect]
     Indication: PRODUCT USED FOR UNKNOWN INDICATION
     Route: 065
     Dates: start: 20090806, end: 20090810
  8. OXYCONTIN [Suspect]
     Indication: PRODUCT USED FOR UNKNOWN INDICATION
     Dosage: 20 MG TWICE A DAY  10-20 MG AS NECESSARY
     Route: 048
     Dates: start: 20090807, end: 20090809
  9. OXYCODONE HCL [Suspect]
     Indication: PRODUCT USED FOR UNKNOWN INDICATION
     Dosage: 5-10 MG AS NECESSARY
     Route: 048
     Dates: start: 20090807, end: 20090809
  10. ACETAMINOPHEN [Suspect]
     Indication: PAIN MANAGEMENT
     Dosage: 1 GM 4 TIMES A DAY
     Route: 065
     Dates: start: 20090806, end: 20090814
  11. RANITIDINE [Concomitant]
     Dosage: 150 MG/DAY
     Route: 065
     Dates: start: 20090805, end: 20090814
  12. XARELTO [Concomitant]
     Indication: THROMBOSIS PROPHYLAXIS
     Dosage: 10 MG 1 TABLET/DAY ADMINISTERED FOR 14 DAYS
     Route: 048
     Dates: start: 20090806
  13. CEFUROXIME SODIUM [Suspect]
     Indication: PRODUCT USED FOR UNKNOWN INDICATION
     Dosage: 750 MG 3 TIMES A DAY
     Route: 042
     Dates: start: 20090806, end: 20090807
  14. XARELTO [Concomitant]
     Indication: KNEE ARTHROPLASTY
     Dosage: 10 MG 1 TABLET/DAY ADMINISTERED FOR 14 DAYS
     Route: 048
     Dates: start: 20090806

REACTIONS (1)
  - HYPERSENSITIVITY [None]
